FAERS Safety Report 25442922 (Version 1)
Quarter: 2025Q2

REPORT INFORMATION
  Report Type: Spontaneous
  Country: CA (occurrence: CA)
  Receive Date: 20250617
  Receipt Date: 20250617
  Transmission Date: 20250717
  Serious: Yes (Hospitalization)
  Sender: ROCHE
  Company Number: CA-ROCHE-10000311584

PATIENT
  Age: 61 Year
  Sex: Male

DRUGS (4)
  1. RITUXIMAB [Suspect]
     Active Substance: RITUXIMAB
     Indication: Encephalitis autoimmune
     Route: 042
  2. ACETAMINOPHEN [Concomitant]
     Active Substance: ACETAMINOPHEN
     Route: 048
  3. DIPHENHYDRAMINE [Concomitant]
     Active Substance: DIPHENHYDRAMINE
     Route: 048
  4. METHYLPREDNISOLONE [Concomitant]
     Active Substance: METHYLPREDNISOLONE
     Route: 042

REACTIONS (8)
  - Arthralgia [Recovering/Resolving]
  - Bronchitis [Recovering/Resolving]
  - Chills [Recovering/Resolving]
  - Lethargy [Recovering/Resolving]
  - Malaise [Recovering/Resolving]
  - Off label use [Unknown]
  - Pain [Recovering/Resolving]
  - Pneumonia [Recovering/Resolving]
